FAERS Safety Report 16891450 (Version 2)
Quarter: 2019Q4

REPORT INFORMATION
  Report Type: Spontaneous
  Country: US (occurrence: US)
  Receive Date: 20191007
  Receipt Date: 20191219
  Transmission Date: 20200122
  Serious: No
  Sender: FDA-Public Use
  Company Number: US-009507513-1910USA006078

PATIENT

DRUGS (2)
  1. CUBICIN [Suspect]
     Active Substance: DAPTOMYCIN
     Indication: ENTEROCOCCAL INFECTION
     Dosage: LESS OR EQUAL TO 6 MG/KG
  2. CUBICIN [Suspect]
     Active Substance: DAPTOMYCIN
     Indication: SYSTEMIC BACTERIAL INFECTION

REACTIONS (2)
  - Rash [Unknown]
  - Off label use [Unknown]
